FAERS Safety Report 14554174 (Version 1)
Quarter: 2018Q1

REPORT INFORMATION
  Report Type: Spontaneous
  Country: US (occurrence: US)
  Receive Date: 20180208
  Receipt Date: 20180208
  Transmission Date: 20180509
  Serious: No
  Sender: FDA-Public Use
  Company Number: None

PATIENT
  Age: 61 Year
  Sex: Male
  Weight: 75.3 kg

DRUGS (1)
  1. MOXIFLOXACIN. [Suspect]
     Active Substance: MOXIFLOXACIN
     Indication: HEPATITIS
     Route: 048
     Dates: start: 20121214, end: 20121223

REACTIONS (3)
  - Hepatic enzyme increased [None]
  - Hepatitis [None]
  - International normalised ratio abnormal [None]

NARRATIVE: CASE EVENT DATE: 20121214
